FAERS Safety Report 23022180 (Version 2)
Quarter: 2023Q4

REPORT INFORMATION
  Report Type: Spontaneous
  Country: FR (occurrence: FR)
  Receive Date: 20231003
  Receipt Date: 20231013
  Transmission Date: 20240110
  Serious: Yes (Other)
  Sender: FDA-Public Use
  Company Number: FR-GLAXOSMITHKLINE-FR2023GSK133615

PATIENT

DRUGS (6)
  1. FLUTICASONE PROPIONATE\SALMETEROL XINAFOATE [Suspect]
     Active Substance: FLUTICASONE PROPIONATE\SALMETEROL XINAFOATE
     Indication: Asthma
     Dosage: UNK, BID
     Route: 055
  2. ITRACONAZOLE [Interacting]
     Active Substance: ITRACONAZOLE
     Indication: Bronchopulmonary aspergillosis
     Dosage: 200 MG, QD
     Dates: start: 202011
  3. ITRACONAZOLE [Interacting]
     Active Substance: ITRACONAZOLE
     Indication: Bronchopulmonary aspergillosis allergic
  4. CLARITHROMYCIN [Interacting]
     Active Substance: CLARITHROMYCIN
     Indication: Atypical mycobacterial infection
     Dosage: 500 MG, QD
     Dates: start: 202012
  5. MOXIFLOXACIN [Suspect]
     Active Substance: MOXIFLOXACIN
     Indication: Atypical mycobacterial infection
     Dosage: 400 MG, QD
     Dates: start: 202012
  6. ETHAMBUTOL [Suspect]
     Active Substance: ETHAMBUTOL HYDROCHLORIDE
     Indication: Atypical mycobacterial infection
     Dosage: 500 MG, QD
     Dates: start: 202012

REACTIONS (14)
  - Cushing^s syndrome [Recovering/Resolving]
  - Osteoporotic fracture [Recovering/Resolving]
  - Hyperadrenocorticism [Recovering/Resolving]
  - Hyperhidrosis [Recovering/Resolving]
  - Drug level increased [Recovering/Resolving]
  - Secondary adrenocortical insufficiency [Recovering/Resolving]
  - Abnormal weight gain [Recovering/Resolving]
  - Skin striae [Recovering/Resolving]
  - Hair growth abnormal [Recovering/Resolving]
  - Adrenocorticotropic hormone deficiency [Recovering/Resolving]
  - Pain in extremity [Recovering/Resolving]
  - Stress fracture [Recovering/Resolving]
  - Osteoporosis [Recovering/Resolving]
  - Drug interaction [Unknown]

NARRATIVE: CASE EVENT DATE: 20210401
